FAERS Safety Report 15850586 (Version 4)
Quarter: 2019Q3

REPORT INFORMATION
  Report Type: Spontaneous
  Country: US (occurrence: US)
  Receive Date: 20190121
  Receipt Date: 20190917
  Transmission Date: 20191004
  Serious: Yes (Hospitalization, Other)
  Sender: FDA-Public Use
  Company Number: US-SA-2019SA014740

PATIENT
  Age: 69 Year
  Sex: Female
  Weight: 152 kg

DRUGS (2)
  1. SOLU-MEDROL [Concomitant]
     Active Substance: METHYLPREDNISOLONE SODIUM SUCCINATE
     Indication: PRODUCT USED FOR UNKNOWN INDICATION
     Dosage: UNK, UNK
     Route: 065
  2. LOVENOX [Suspect]
     Active Substance: ENOXAPARIN SODIUM
     Indication: ATRIAL FIBRILLATION
     Dosage: 130 MG, BID
     Route: 065
     Dates: start: 20190105, end: 20190110

REACTIONS (8)
  - Atrial fibrillation [Unknown]
  - Dizziness [Unknown]
  - Abdominal wall haematoma [Unknown]
  - Movement disorder [Recovering/Resolving]
  - Haemorrhage [Unknown]
  - Alopecia [Recovering/Resolving]
  - Skin disorder [Unknown]
  - Product administered at inappropriate site [Unknown]

NARRATIVE: CASE EVENT DATE: 20190111
